FAERS Safety Report 13375136 (Version 3)
Quarter: 2018Q3

REPORT INFORMATION
  Report Type: Report from Study
  Country: None (occurrence: ES)
  Receive Date: 20170327
  Receipt Date: 20180807
  Transmission Date: 20181010
  Serious: Yes (Life-Threatening, Hospitalization, Other)
  Sender: FDA-Public Use
  Company Number: ES-BAUSCH-BL-2017-007750

PATIENT
  Age: 42 Year
  Sex: Male

DRUGS (3)
  1. PEGINTERFERON ALFA?2A. [Interacting]
     Active Substance: PEGINTERFERON ALFA-2A
     Indication: HEPATITIS C
     Dosage: 1 WEEK
     Route: 065
  2. BOCEPREVIR [Interacting]
     Active Substance: BOCEPREVIR
     Indication: HEPATITIS C
     Route: 065
  3. RIBAVIRIN. [Suspect]
     Active Substance: RIBAVIRIN
     Indication: HEPATITIS C
     Dosage: 1 DAY
     Route: 065

REACTIONS (6)
  - Drug interaction [Unknown]
  - Neutropenia [Recovered/Resolved]
  - Infection [Unknown]
  - Agranulocytosis [Recovered/Resolved]
  - Pancytopenia [Recovered/Resolved]
  - Haematotoxicity [Recovered/Resolved]
